FAERS Safety Report 7110482-2 (Version None)
Quarter: 2010Q4

REPORT INFORMATION
  Report Type: 
  Country: None (occurrence: None)
  Receive Date: 20101118
  Receipt Date: 20100920
  Transmission Date: 20110411
  Serious: No
  Sender: FDA-Public Use
  Company Number: US-MYLANLABS-2010S1016337

PATIENT
  Age: 65 Year
  Sex: Female

DRUGS (8)
  1. SUMATRIPTAN SUCCINATE [Suspect]
     Indication: MIGRAINE
     Route: 048
     Dates: start: 20100830, end: 20100831
  2. LEVOXYL [Concomitant]
     Indication: THYROIDECTOMY
  3. HYDROCHLOROTHIAZIDE [Concomitant]
     Route: 048
  4. COZAAR [Concomitant]
     Route: 048
  5. ASCORBIC ACID [Concomitant]
  6. CENTRUM SILVER [Concomitant]
  7. CALCIUM [Concomitant]
  8. ASPIRIN [Concomitant]

REACTIONS (3)
  - PRURITUS [None]
  - REACTION TO DRUG EXCIPIENTS [None]
  - URTICARIA [None]
